FAERS Safety Report 5521057-0 (Version None)
Quarter: 2007Q4

REPORT INFORMATION
  Report Type: 
  Country: None (occurrence: None)
  Receive Date: 20071119
  Receipt Date: 20071108
  Transmission Date: 20080405
  Serious: Yes (Other)
  Sender: FDA-Public Use
  Company Number: US-JNJFOC-20071104622

PATIENT
  Sex: Female
  Weight: 54.43 kg

DRUGS (2)
  1. LEVAQUIN [Suspect]
     Indication: SINUSITIS
     Route: 048
  2. FLONASE [Concomitant]
     Indication: SINUSITIS
     Route: 065

REACTIONS (2)
  - ARTHRALGIA [None]
  - HYPERTENSION [None]
